FAERS Safety Report 5513748-2 (Version None)
Quarter: 2007Q4

REPORT INFORMATION
  Report Type: 
  Country: None (occurrence: None)
  Receive Date: 20071113
  Receipt Date: 20071105
  Transmission Date: 20080405
  Serious: Yes (Other)
  Sender: FDA-Public Use
  Company Number: PHBS2007JP17876

PATIENT
  Age: 2 Month
  Sex: Male

DRUGS (5)
  1. TEGRETOL [Suspect]
     Indication: PARTIAL SEIZURES
  2. VALPROATE SODIUM [Suspect]
     Indication: PARTIAL SEIZURES
     Route: 048
  3. CLONAZEPAM [Concomitant]
  4. PHENOBARBITAL TAB [Concomitant]
     Indication: PARTIAL SEIZURES
  5. CARZINOPHILIN [Concomitant]
     Indication: PARTIAL SEIZURES

REACTIONS (3)
  - CONTINUOUS HAEMODIAFILTRATION [None]
  - HYPERAMMONAEMIA [None]
  - METABOLIC ACIDOSIS [None]
